FAERS Safety Report 21292147 (Version 1)
Quarter: 2022Q3

REPORT INFORMATION
  Report Type: Spontaneous
  Country: US (occurrence: None)
  Receive Date: 20220905
  Receipt Date: 20220905
  Transmission Date: 20221027
  Serious: No
  Sender: FDA-Public Use
  Company Number: 2022A294671

PATIENT
  Age: 66 Year
  Sex: Male
  Weight: 98.9 kg

DRUGS (2)
  1. BYDUREON BCISE [Suspect]
     Active Substance: EXENATIDE
     Indication: Glycosylated haemoglobin increased
     Route: 058
     Dates: start: 2020
  2. PREDNISONE [Concomitant]
     Active Substance: PREDNISONE

REACTIONS (7)
  - Injury associated with device [Unknown]
  - Cough [Unknown]
  - Throat irritation [Unknown]
  - Glycosylated haemoglobin increased [Unknown]
  - Weight decreased [Unknown]
  - Injection site extravasation [Unknown]
  - Product use issue [Unknown]

NARRATIVE: CASE EVENT DATE: 20200101
